FAERS Safety Report 13660140 (Version 3)
Quarter: 2017Q3

REPORT INFORMATION
  Report Type: Spontaneous
  Country: DE (occurrence: DE)
  Receive Date: 20170616
  Receipt Date: 20170912
  Transmission Date: 20171127
  Serious: Yes (Hospitalization, Other)
  Sender: FDA-Public Use
  Company Number: DE-009507513-1706DEU006266

PATIENT
  Age: 81 Year
  Sex: Male

DRUGS (3)
  1. JANUVIA [Suspect]
     Active Substance: SITAGLIPTIN PHOSPHATE
     Indication: TYPE 2 DIABETES MELLITUS
     Dosage: UNK
     Route: 048
  2. JANUMET [Suspect]
     Active Substance: METFORMIN HYDROCHLORIDE\SITAGLIPTIN PHOSPHATE
     Indication: TYPE 2 DIABETES MELLITUS
     Dosage: 50MG/1000MG, TWICE DAILY
     Route: 048
     Dates: start: 20170403, end: 201707
  3. JANUVIA [Suspect]
     Active Substance: SITAGLIPTIN PHOSPHATE
     Dosage: 50 MG, A DAY
     Route: 048
     Dates: start: 201707

REACTIONS (9)
  - Renal failure [Unknown]
  - Fatigue [Unknown]
  - Hepatitis C [Unknown]
  - Cerebrospinal fluid retention [Unknown]
  - Personality change [Unknown]
  - Aggression [Unknown]
  - Syncope [Unknown]
  - Weight decreased [Unknown]
  - Lymphoma [Unknown]

NARRATIVE: CASE EVENT DATE: 2017
